FAERS Safety Report 8069361-9 (Version None)
Quarter: 2012Q1

REPORT INFORMATION
  Report Type: 
  Country: None (occurrence: None)
  Receive Date: 20120118
  Receipt Date: 20120110
  Transmission Date: 20120608
  Serious: Yes (Other)
  Sender: FDA-Public Use
  Company Number: JPI-P-019238

PATIENT
  Age: 63 Year
  Sex: Female

DRUGS (2)
  1. XYREM [Suspect]
     Indication: NARCOLEPSY
     Dosage: 5 GM (2.5 GM, 2 IN 1 D), ORAL; ORAL; 9 GM (4.5 GM, 2 IN 1 D), ORAL
     Route: 048
     Dates: start: 20110818
  2. XYREM [Suspect]
     Indication: NARCOLEPSY
     Dosage: 5 GM (2.5 GM, 2 IN 1 D), ORAL; ORAL; 9 GM (4.5 GM, 2 IN 1 D), ORAL
     Route: 048
     Dates: start: 20060721

REACTIONS (1)
  - BREAST CANCER [None]
